FAERS Safety Report 8391941-1 (Version None)
Quarter: 2012Q2

REPORT INFORMATION
  Report Type: 
  Country: None (occurrence: None)
  Receive Date: 20120529
  Receipt Date: 20120523
  Transmission Date: 20120825
  Serious: Yes (Other)
  Sender: FDA-Public Use
  Company Number: GB-GLAXOSMITHKLINE-B0803447A

PATIENT
  Age: 52 Year
  Sex: Male

DRUGS (3)
  1. CARBAMAZEPINE [Concomitant]
  2. POTIGA [Suspect]
     Indication: EPILEPSY
     Dosage: 200MG THREE TIMES PER DAY
     Route: 048
     Dates: start: 20110601
  3. CLOBAZAM [Concomitant]

REACTIONS (2)
  - MOOD ALTERED [None]
  - AGGRESSION [None]
